FAERS Safety Report 12165652 (Version 1)
Quarter: 2016Q1

REPORT INFORMATION
  Report Type: Spontaneous
  Country: FR (occurrence: FR)
  Receive Date: 20160309
  Receipt Date: 20160309
  Transmission Date: 20160526
  Serious: Yes (Other)
  Sender: FDA-Public Use
  Company Number: ALCN2016FR001044

PATIENT
  Age: 17 Month
  Sex: Female
  Weight: 8.5 kg

DRUGS (3)
  1. ATROPINE SULFATE. [Suspect]
     Active Substance: ATROPINE SULFATE
     Indication: OPHTHALMOLOGICAL EXAMINATION
     Dosage: UNK
     Route: 047
     Dates: start: 20160129, end: 20160130
  2. ZYMA-D2 [Concomitant]
     Active Substance: ERGOCALCIFEROL
     Indication: VITAMIN SUPPLEMENTATION
     Dosage: UNK
     Route: 065
  3. ATROPINE SULFATE. [Suspect]
     Active Substance: ATROPINE SULFATE
     Indication: OPHTHALMOLOGICAL EXAMINATION
     Dosage: UNK UNK, NO TREATMENT
     Route: 047

REACTIONS (13)
  - Dark circles under eyes [Recovering/Resolving]
  - Drug dispensing error [Unknown]
  - Pyrexia [Recovered/Resolved]
  - Flushing [Recovered/Resolved]
  - Delirium febrile [Recovered/Resolved]
  - Nasopharyngitis [Recovered/Resolved]
  - Fatigue [Recovered/Resolved]
  - Drug administration error [Unknown]
  - Ocular hyperaemia [Unknown]
  - Agitation [Recovered/Resolved]
  - Screaming [Recovered/Resolved]
  - Aggression [Recovered/Resolved]
  - Eye discharge [Recovered/Resolved]

NARRATIVE: CASE EVENT DATE: 201601
